FAERS Safety Report 20128704 (Version 2)
Quarter: 2021Q4

REPORT INFORMATION
  Report Type: Spontaneous
  Country: AU (occurrence: AU)
  Receive Date: 20211130
  Receipt Date: 20211229
  Transmission Date: 20220303
  Serious: Yes (Hospitalization, Other)
  Sender: FDA-Public Use
  Company Number: AU-AMGEN-AUSSP2021186264

PATIENT
  Age: 74 Year
  Sex: Female

DRUGS (3)
  1. EVENITY [Suspect]
     Active Substance: ROMOSOZUMAB-AQQG
     Indication: Osteoporosis
     Dosage: UNK, QMO
     Route: 065
     Dates: start: 20210504, end: 202110
  2. EVENITY [Suspect]
     Active Substance: ROMOSOZUMAB-AQQG
  3. PROLIA [Suspect]
     Active Substance: DENOSUMAB
     Indication: Osteoporosis
     Dosage: UNK
     Route: 065
     Dates: start: 2018, end: 202102

REACTIONS (14)
  - Femur fracture [Unknown]
  - Hemiplegia [Unknown]
  - Haemoglobin decreased [Unknown]
  - Extravasation blood [Unknown]
  - Blood potassium decreased [Unknown]
  - Protein albumin ratio decreased [Unknown]
  - Fall [Unknown]
  - Fluid retention [Recovering/Resolving]
  - Nausea [Unknown]
  - Alopecia [Unknown]
  - Anxiety [Unknown]
  - Mental disorder [Unknown]
  - Loose tooth [Unknown]
  - Jaw disorder [Unknown]

NARRATIVE: CASE EVENT DATE: 20210101
